FAERS Safety Report 18109996 (Version 1)
Quarter: 2020Q3

REPORT INFORMATION
  Report Type: Spontaneous
  Country: US (occurrence: MX)
  Receive Date: 20200804
  Receipt Date: 20200804
  Transmission Date: 20201103
  Serious: Yes (Hospitalization, Disabling, Other)
  Sender: FDA-Public Use
  Company Number: MX-BIOMARINAP-MX-2020-131503

PATIENT
  Age: 11 Year
  Sex: Female
  Weight: 28 kg

DRUGS (2)
  1. ALDURAZYME [Suspect]
     Active Substance: LARONIDASE
     Dosage: 17.86 INTERNATIONAL UNIT/KILOGRAM, QW
     Route: 041
     Dates: start: 2020
  2. ALDURAZYME [Suspect]
     Active Substance: LARONIDASE
     Indication: MUCOPOLYSACCHARIDOSIS I
     Dosage: 17.86 INTERNATIONAL UNIT/KILOGRAM, QW
     Route: 041
     Dates: start: 2011, end: 20200128

REACTIONS (4)
  - Arterial disorder [Recovered/Resolved]
  - Mobility decreased [Not Recovered/Not Resolved]
  - Pyrexia [Recovering/Resolving]
  - Influenza [Recovering/Resolving]

NARRATIVE: CASE EVENT DATE: 2011
